FAERS Safety Report 21299367 (Version 2)
Quarter: 2022Q3

REPORT INFORMATION
  Report Type: Report from Study
  Country: US (occurrence: US)
  Receive Date: 20220906
  Receipt Date: 20220929
  Transmission Date: 20221027
  Serious: Yes (Other)
  Sender: FDA-Public Use
  Company Number: US-JNJFOC-20220857054

PATIENT
  Age: 78 Year
  Sex: Female
  Weight: 83.536 kg

DRUGS (3)
  1. SPRAVATO [Suspect]
     Active Substance: ESKETAMINE
     Indication: Depression
     Dosage: 56 MG
  2. SPRAVATO [Suspect]
     Active Substance: ESKETAMINE
     Dosage: 84 MG, 1 DOSE
     Dates: start: 202208, end: 202208
  3. SPRAVATO [Suspect]
     Active Substance: ESKETAMINE
     Dates: start: 20220825, end: 20220825

REACTIONS (3)
  - Bradycardia [Recovered/Resolved]
  - Dissociation [Recovered/Resolved]
  - Anxiety [Unknown]

NARRATIVE: CASE EVENT DATE: 20220825
